FAERS Safety Report 8866261 (Version 1)
Quarter: 2012Q4

REPORT INFORMATION
  Report Type: 
  Country: FR (occurrence: FR)
  Receive Date: 20121025
  Receipt Date: 20121025
  Transmission Date: 20130627
  Serious: Yes (Other)
  Sender: FDA-Public Use
  Company Number: FR-ELI_LILLY_AND_COMPANY-FR201210007343

PATIENT
  Age: 48 Year
  Sex: Female

DRUGS (2)
  1. DULOXETINE HYDROCHLORIDE [Suspect]
     Indication: DEPRESSION
  2. TAMOXIFEN [Concomitant]
     Indication: BREAST CANCER

REACTIONS (3)
  - Breast cancer recurrent [Unknown]
  - Drug interaction [Recovered/Resolved]
  - Drug effect decreased [None]
